FAERS Safety Report 18283778 (Version 2)
Quarter: 2021Q1

REPORT INFORMATION
  Report Type: Report from Study
  Country: GB (occurrence: GB)
  Receive Date: 20200918
  Receipt Date: 20210208
  Transmission Date: 20210419
  Serious: Yes (Hospitalization, Other)
  Sender: FDA-Public Use
  Company Number: NVSC2020GB250161

PATIENT
  Sex: Female

DRUGS (1)
  1. HYRIMOZ [Suspect]
     Active Substance: ADALIMUMAB-ADAZ
     Indication: RHEUMATOID ARTHRITIS
     Dosage: 40 MG, Q2W
     Route: 058

REACTIONS (3)
  - Escherichia infection [Unknown]
  - Sepsis [Unknown]
  - Spinal cord infection [Unknown]
